FAERS Safety Report 5545413-X (Version None)
Quarter: 2007Q4

REPORT INFORMATION
  Report Type: 
  Country: None (occurrence: None)
  Receive Date: 20071126
  Receipt Date: 20070319
  Transmission Date: 20080405
  Serious: Yes (Hospitalization)
  Sender: FDA-Public Use
  Company Number: 2007BH003010

PATIENT
  Age: 72 Year
  Sex: Female

DRUGS (14)
  1. DIANEAL [Suspect]
     Indication: RENAL FAILURE CHRONIC
     Dosage: 6 L; IP
     Route: 033
     Dates: start: 20050302
  2. DIANEAL [Suspect]
     Indication: RENAL FAILURE CHRONIC
     Dosage: 6 L; IP
     Route: 033
     Dates: start: 20050302
  3. EPOGEN [Concomitant]
  4. LISINOPRIL [Concomitant]
  5. LASIX [Concomitant]
  6. CALCITRIOL [Concomitant]
  7. PLAVIX [Concomitant]
  8. LEVOTHYROXINE SODIUM [Concomitant]
  9. ZETIA [Concomitant]
  10. COREG [Concomitant]
  11. INSULIN [Concomitant]
  12. HUMALOG [Concomitant]
  13. AMIODARONE HCL [Concomitant]
  14. NEPHRO-VITE RX [Concomitant]

REACTIONS (1)
  - PERITONITIS [None]
